FAERS Safety Report 15793363 (Version 1)
Quarter: 2019Q1

REPORT INFORMATION
  Report Type: Spontaneous
  Country: US (occurrence: US)
  Receive Date: 20190103
  Receipt Date: 20190103
  Transmission Date: 20190417
  Serious: No
  Sender: FDA-Public Use
  Company Number: None

PATIENT

DRUGS (2)
  1. HUMALOG KWIKPEN [Suspect]
     Active Substance: INSULIN LISPRO
     Dosage: ?          OTHER STRENGTH:100 UNITS/ML;?
     Route: 058
  2. LANTUS SOLOSTAR [Suspect]
     Active Substance: INSULIN GLARGINE
     Dosage: ?          OTHER STRENGTH:100 UNITS/ML;?
     Route: 058

REACTIONS (2)
  - Product dispensing error [None]
  - Product packaging issue [None]
